FAERS Safety Report 10917889 (Version 4)
Quarter: 2015Q2

REPORT INFORMATION
  Report Type: Spontaneous
  Country: US (occurrence: US)
  Receive Date: 20150316
  Receipt Date: 20150618
  Transmission Date: 20150821
  Serious: Yes (Death, Life-Threatening, Hospitalization)
  Sender: FDA-Public Use
  Company Number: US-JNJFOC-20150307246

PATIENT
  Age: 92 Year
  Sex: Male
  Weight: 65.32 kg

DRUGS (28)
  1. DULCOLAX [Concomitant]
     Active Substance: BISACODYL OR DOCUSATE SODIUM
     Indication: CONSTIPATION
     Route: 054
     Dates: start: 20141130
  2. XARELTO [Suspect]
     Active Substance: RIVAROXABAN
     Indication: CEREBROVASCULAR ACCIDENT PROPHYLAXIS
     Route: 048
     Dates: start: 20141120
  3. LANOXIN [Concomitant]
     Active Substance: DIGOXIN
     Indication: CARDIAC FAILURE
     Dosage: MONDAY, WEDNESDAY AND FRIDAY
     Route: 048
     Dates: start: 20141120
  4. FLUTICASONE [Concomitant]
     Active Substance: FLUTICASONE\FLUTICASONE PROPIONATE
     Dosage: DOSAGE: 2 PUFFS
     Route: 045
  5. BUMEX [Concomitant]
     Active Substance: BUMETANIDE
     Route: 048
     Dates: start: 20141130, end: 20141230
  6. ATORVASTATIN [Concomitant]
     Active Substance: ATORVASTATIN
     Indication: BLOOD CHOLESTEROL
     Route: 048
  7. SYMBICORT [Concomitant]
     Active Substance: BUDESONIDE\FORMOTEROL FUMARATE DIHYDRATE
     Indication: ASTHMA
     Dosage: STRENGTH: 80/4.5 MCG; DOSE: 2 PUFFS  TWICE DAILY
     Route: 065
     Dates: start: 20141130, end: 20141230
  8. LIPITOR [Concomitant]
     Active Substance: ATORVASTATIN CALCIUM
     Route: 048
     Dates: start: 20120502
  9. NORVASC [Concomitant]
     Active Substance: AMLODIPINE BESYLATE
     Route: 048
     Dates: start: 20110509
  10. XARELTO [Suspect]
     Active Substance: RIVAROXABAN
     Indication: ATRIAL FIBRILLATION
     Route: 048
     Dates: start: 20141120
  11. FUROSEMIDE. [Concomitant]
     Active Substance: FUROSEMIDE
     Indication: DIURETIC THERAPY
     Route: 048
     Dates: end: 201411
  12. LUTEIN [Concomitant]
     Active Substance: LUTEIN
     Route: 048
  13. PACERONE [Concomitant]
     Active Substance: AMIODARONE HYDROCHLORIDE
     Indication: ARRHYTHMIA
     Dosage: 0.5 TABLET BY ORAL
     Route: 048
     Dates: start: 20140801
  14. FUROSEMIDE. [Concomitant]
     Active Substance: FUROSEMIDE
     Indication: DIURETIC THERAPY
     Route: 048
  15. ALFUZOSIN [Concomitant]
     Active Substance: ALFUZOSIN
     Indication: URINARY INCONTINENCE
     Route: 048
  16. ADVAIR DISKUS [Concomitant]
     Active Substance: FLUTICASONE PROPIONATE\SALMETEROL XINAFOATE
     Dosage: 100-50MCG/DOSE
     Route: 055
  17. PACERONE [Concomitant]
     Active Substance: AMIODARONE HYDROCHLORIDE
     Indication: ARRHYTHMIA
     Route: 048
  18. FUROSEMIDE. [Concomitant]
     Active Substance: FUROSEMIDE
     Indication: DIURETIC THERAPY
     Dosage: ONE AND HALF PILL PER DAY
     Route: 048
  19. BIDIL [Concomitant]
     Active Substance: HYDRALAZINE HYDROCHLORIDE\ISOSORBIDE DINITRATE
     Indication: DIURETIC THERAPY
     Route: 048
  20. LEVOXYL [Concomitant]
     Active Substance: LEVOTHYROXINE SODIUM
     Indication: THYROID DISORDER
     Route: 048
  21. CENTRUM SILVER [Concomitant]
     Active Substance: VITAMINS
     Indication: NUTRITIONAL SUPPLEMENTATION
     Route: 065
  22. VITAMIN D3 [Concomitant]
     Active Substance: CHOLECALCIFEROL
     Indication: NUTRITIONAL SUPPLEMENTATION
     Dosage: 1000 UNITS ONE PILL DAILY
     Route: 048
  23. APRESOLINE HYDROCHLORIDE [Concomitant]
     Active Substance: HYDRALAZINE HYDROCHLORIDE
     Route: 048
     Dates: start: 20141130, end: 20141230
  24. CRANBERRY EXTRACT [Concomitant]
     Active Substance: CRANBERRY JUICE
     Indication: URINARY INCONTINENCE
     Route: 065
  25. MIRALAX [Concomitant]
     Active Substance: POLYETHYLENE GLYCOL 3350
     Route: 048
     Dates: start: 20141130
  26. UROXATRAL [Concomitant]
     Active Substance: ALFUZOSIN HYDROCHLORIDE
     Indication: ARRHYTHMIA
     Route: 048
  27. UROXATRAL [Concomitant]
     Active Substance: ALFUZOSIN HYDROCHLORIDE
     Indication: ARRHYTHMIA
     Route: 048
  28. LEVOXYL [Concomitant]
     Active Substance: LEVOTHYROXINE SODIUM
     Indication: THYROID DISORDER
     Route: 048

REACTIONS (12)
  - Fall [Not Recovered/Not Resolved]
  - Laceration [Not Recovered/Not Resolved]
  - Head injury [Recovered/Resolved]
  - Cardiac failure [Unknown]
  - Discomfort [Unknown]
  - Renal failure [Fatal]
  - Tremor [Not Recovered/Not Resolved]
  - Blood urine [Not Recovered/Not Resolved]
  - Haemorrhage [Recovered/Resolved]
  - Nephrogenic anaemia [Unknown]
  - Tachycardia [Recovered/Resolved]
  - Blood pressure decreased [Unknown]

NARRATIVE: CASE EVENT DATE: 20141121
